FAERS Safety Report 8236969-7 (Version None)
Quarter: 2012Q1

REPORT INFORMATION
  Report Type: 
  Country: None (occurrence: None)
  Receive Date: 20120327
  Receipt Date: 20120321
  Transmission Date: 20120608
  Serious: Yes (Other)
  Sender: FDA-Public Use
  Company Number: PHEH2010US00516

PATIENT
  Sex: Female

DRUGS (32)
  1. OXYCONTIN [Concomitant]
  2. ACCOLATE [Concomitant]
  3. ZOMETA [Suspect]
     Dosage: UNK UKN, UNK
     Route: 042
  4. CLARINEX-D [Concomitant]
  5. BENADRYL [Concomitant]
  6. DOPAMINE HCL [Concomitant]
     Route: 042
  7. TAXOL [Concomitant]
  8. NARCAN [Concomitant]
     Dosage: 0.4 MG, UNK
     Route: 042
  9. FENTANYL [Concomitant]
     Dosage: 1 DF, EVERY 3 DAYS
     Route: 061
  10. ADVAIR DISKUS 100/50 [Concomitant]
     Dosage: UNK UKN, BID
  11. AROMASIN [Concomitant]
  12. CHEMOTHERAPEUTICS [Concomitant]
     Dosage: UNK UKN, UNK
     Dates: end: 20080901
  13. MOTRIN [Concomitant]
     Dosage: UNK UKN, Q6H
  14. AMOXICILLIN [Concomitant]
  15. SOLU-MEDROL [Concomitant]
  16. ADRIAMYCIN PFS [Concomitant]
  17. CYTOXAN [Concomitant]
  18. ZOLOFT [Concomitant]
     Dosage: 1 DF, QD
     Route: 048
  19. DULCOLAX [Concomitant]
  20. LOVENOX [Concomitant]
     Dosage: 80 MG, UNK
     Route: 048
  21. ALLEGRA [Concomitant]
  22. FLOVENT [Concomitant]
  23. CLINDAMYCIN [Concomitant]
  24. PROTONIX [Concomitant]
  25. DELTASONE [Concomitant]
  26. ELAVIL [Concomitant]
  27. VENTOLIN [Concomitant]
     Dosage: 2 PUFFS, PRN
  28. SINGULAIR [Concomitant]
     Dosage: 1 DF, PRN
     Route: 048
  29. CORDARONE [Concomitant]
     Route: 042
  30. DILAUDID [Concomitant]
     Route: 042
  31. ASTELIN [Concomitant]
  32. SEREVENT [Concomitant]

REACTIONS (25)
  - PRIMARY SEQUESTRUM [None]
  - LYMPHADENOPATHY [None]
  - METASTASES TO BONE [None]
  - EXPOSED BONE IN JAW [None]
  - PAIN IN JAW [None]
  - ANAEMIA [None]
  - INTERVERTEBRAL DISC DEGENERATION [None]
  - PAIN [None]
  - DIVERTICULUM [None]
  - OSTEONECROSIS OF JAW [None]
  - TOOTH INFECTION [None]
  - BREAST ENLARGEMENT [None]
  - METASTASES TO SPINE [None]
  - DYSPNOEA [None]
  - CHEST PAIN [None]
  - GENERAL PHYSICAL HEALTH DETERIORATION [None]
  - BREAST CANCER METASTATIC [None]
  - ANXIETY [None]
  - BONE PAIN [None]
  - THROMBOCYTOPENIA [None]
  - DECREASED INTEREST [None]
  - ASTHMA [None]
  - SPLENOMEGALY [None]
  - DEPRESSION [None]
  - HEPATIC STEATOSIS [None]
